FAERS Safety Report 4771735-6 (Version None)
Quarter: 2005Q3

REPORT INFORMATION
  Report Type: 
  Country: None (occurrence: None)
  Receive Date: 20050916
  Receipt Date: 20050817
  Transmission Date: 20060218
  Serious: Yes (Hospitalization)
  Sender: FDA-Public Use
  Company Number: JP-ROCHE-414658

PATIENT
  Age: 46 Year
  Sex: Female

DRUGS (4)
  1. XELODA [Suspect]
     Indication: BREAST CANCER
     Dosage: THREE WEEKS ADMINISTRATION FOLLOWED BY ONE WEEK REST
     Route: 048
     Dates: start: 20050523
  2. AREDIA [Concomitant]
     Route: 042
     Dates: start: 20050303
  3. ACINON [Concomitant]
     Route: 048
     Dates: start: 20050704
  4. ULGUT [Concomitant]
     Route: 048
     Dates: start: 20050704

REACTIONS (5)
  - DYSPHAGIA [None]
  - HYPOAESTHESIA ORAL [None]
  - NAUSEA [None]
  - PALMAR-PLANTAR ERYTHRODYSAESTHESIA SYNDROME [None]
  - SPEECH DISORDER [None]
